FAERS Safety Report 5165434-9 (Version None)
Quarter: 2006Q4

REPORT INFORMATION
  Report Type: 
  Country: None (occurrence: None)
  Receive Date: 20061117
  Receipt Date: 20061107
  Transmission Date: 20070319
  Serious: Yes (Other)
  Sender: FDA-Public Use
  Company Number: THYM-11168

PATIENT
  Age: 39 Year
  Sex: Male

DRUGS (6)
  1. THYMOGLOBULIN [Suspect]
     Indication: PROPHYLAXIS AGAINST TRANSPLANT REJECTION
     Dosage: 125 MG QD IV
     Route: 042
     Dates: start: 20061102, end: 20061102
  2. THYMOGLOBULIN [Suspect]
     Indication: PROPHYLAXIS AGAINST TRANSPLANT REJECTION
     Dosage: 75 MG QD IV
     Route: 042
     Dates: start: 20061104, end: 20061104
  3. METHYLPREDNISOLONE [Concomitant]
  4. TYLENOL [Concomitant]
  5. BENADRYL [Concomitant]
  6. MEXILETINE HYDROCHLORIDE [Concomitant]

REACTIONS (3)
  - COMPLICATIONS OF TRANSPLANTED KIDNEY [None]
  - HYPOTENSION [None]
  - INFUSION RELATED REACTION [None]
